FAERS Safety Report 18390344 (Version 2)
Quarter: 2020Q4

REPORT INFORMATION
  Report Type: Spontaneous
  Country: BR (occurrence: BR)
  Receive Date: 20201015
  Receipt Date: 20201026
  Transmission Date: 20210114
  Serious: Yes (Hospitalization, Other)
  Sender: FDA-Public Use
  Company Number: BR-SA-2020SA281380

PATIENT

DRUGS (2)
  1. APIDRA [Suspect]
     Active Substance: INSULIN GLULISINE
     Dosage: UNK
     Route: 065
  2. NPH INSULIN [Suspect]
     Active Substance: INSULIN BEEF
     Dosage: UNK
     Route: 065

REACTIONS (7)
  - Hemiplegia [Unknown]
  - Diabetes mellitus inadequate control [Recovered/Resolved]
  - Hypoglycaemia [Unknown]
  - Myalgia [Unknown]
  - Muscle spasms [Unknown]
  - Cerebrovascular accident [Unknown]
  - Carotid artery occlusion [Unknown]

NARRATIVE: CASE EVENT DATE: 202010
